FAERS Safety Report 6177028-7 (Version None)
Quarter: 2009Q2

REPORT INFORMATION
  Report Type: 
  Country: None (occurrence: None)
  Receive Date: 20090501
  Receipt Date: 20090311
  Transmission Date: 20091009
  Serious: Yes (Hospitalization)
  Sender: FDA-Public Use
  Company Number: US-ALEXION-A200900157

PATIENT
  Sex: Male

DRUGS (18)
  1. SOLIRIS [Suspect]
     Indication: PAROXYSMAL NOCTURNAL HAEMOGLOBINURIA
     Dosage: 600 MG, QW
     Route: 042
     Dates: start: 20070713, end: 20070803
  2. SOLIRIS [Suspect]
     Dosage: 900 MG, Q2W
     Route: 042
     Dates: start: 20070810
  3. SOLIRIS [Suspect]
     Dosage: 600 MG, SINGLE
     Route: 042
     Dates: start: 20090305, end: 20090305
  4. SOLIRIS [Suspect]
     Dosage: 600 MG, QW
     Route: 042
     Dates: start: 20090309
  5. ATIVAN [Concomitant]
     Dosage: 1 MG, UNK
     Route: 048
  6. AUGMENTIN '125' [Concomitant]
     Dosage: 875/125 MG, UNK
     Route: 048
  7. DILAUDID [Concomitant]
     Dosage: 2 MG, UNK
     Route: 048
  8. FOLIC ACID [Concomitant]
     Dosage: UNK
     Route: 048
  9. LOTREL [Concomitant]
     Dosage: 10/40 MG, UNK
     Route: 048
  10. LOVENOX [Concomitant]
     Dosage: 80 MG, UNK
  11. METOPROLOL TARTRATE [Concomitant]
     Dosage: 50 MG, UNK
     Route: 048
  12. NEXIUM [Concomitant]
     Dosage: 40 MG, UNK
     Route: 048
  13. OXYCONTIN [Concomitant]
     Dosage: 60 MG, Q12H
     Route: 048
  14. PROMETHAZINE [Concomitant]
     Dosage: 25 MG, UNK
     Route: 048
  15. SENNA-MINT WAF [Concomitant]
     Dosage: UNK
     Route: 048
  16. ZOFRAN [Concomitant]
     Dosage: 8 MG, UNK
     Route: 048
  17. INSULIN [Concomitant]
     Dosage: UNK
  18. CYCLOSPORINE [Suspect]
     Indication: BONE MARROW CONDITIONING REGIMEN

REACTIONS (15)
  - ABDOMINAL PAIN [None]
  - ADVERSE DRUG REACTION [None]
  - ANAEMIA [None]
  - ASTHENIA [None]
  - DIZZINESS [None]
  - DRUG INTOLERANCE [None]
  - DYSPNOEA [None]
  - FEBRILE NEUTROPENIA [None]
  - FEELING ABNORMAL [None]
  - HEADACHE [None]
  - NAUSEA [None]
  - OEDEMA PERIPHERAL [None]
  - RENAL FAILURE ACUTE [None]
  - SUBCLAVIAN VEIN THROMBOSIS [None]
  - VOMITING [None]
